FAERS Safety Report 6843966-2 (Version None)
Quarter: 2010Q3

REPORT INFORMATION
  Report Type: 
  Country: None (occurrence: None)
  Receive Date: 20100715
  Receipt Date: 20100706
  Transmission Date: 20110219
  Serious: Yes (Disabling)
  Sender: FDA-Public Use
  Company Number: CA-PFIZER INC-2010084121

PATIENT
  Age: 68 Year
  Sex: Male

DRUGS (8)
  1. ZITHROMAX [Suspect]
  2. LEVOFLOXACIN [Suspect]
     Indication: BRONCHITIS
     Dosage: 500 MG, 1X/DAY
     Route: 048
     Dates: start: 20100523, end: 20100530
  3. ARTHROTEC [Concomitant]
  4. TAMSULOSIN [Concomitant]
  5. SOTALOL [Concomitant]
  6. ACETYLSALICYLIC ACID [Concomitant]
     Dosage: 80 MG, UNK
  7. PANTOPRAZOLE SODIUM [Concomitant]
  8. BUDESONIDE/FORMOTEROL FUMARATE [Concomitant]

REACTIONS (4)
  - GAIT DISTURBANCE [None]
  - JOINT SWELLING [None]
  - PAIN IN EXTREMITY [None]
  - TENDON PAIN [None]
